FAERS Safety Report 16669825 (Version 1)
Quarter: 2019Q3

REPORT INFORMATION
  Report Type: Spontaneous
  Country: US (occurrence: US)
  Receive Date: 20190620
  Receipt Date: 20190620
  Transmission Date: 20191004
  Serious: Yes (Life-Threatening)
  Sender: FDA-Public Use
  Company Number: None

PATIENT
  Age: 82 Year
  Sex: Male
  Weight: 75.75 kg

DRUGS (1)
  1. XARELTO [Suspect]
     Active Substance: RIVAROXABAN
     Route: 048

REACTIONS (8)
  - Syncope [None]
  - Haemorrhage [None]
  - Gastrointestinal haemorrhage [None]
  - Fall [None]
  - Loss of consciousness [None]
  - Haematemesis [None]
  - Melaena [None]
  - Head injury [None]

NARRATIVE: CASE EVENT DATE: 20190404
